FAERS Safety Report 10571585 (Version 1)
Quarter: 2014Q4

REPORT INFORMATION
  Report Type: Spontaneous
  Country: US (occurrence: US)
  Receive Date: 20141107
  Receipt Date: 20141107
  Transmission Date: 20150529
  Serious: Yes (Life-Threatening, Hospitalization, Other)
  Sender: FDA-Public Use
  Company Number: US-BAYER-2014-161364

PATIENT
  Age: 79 Year
  Sex: Male

DRUGS (6)
  1. ESTRADIOL. [Suspect]
     Active Substance: ESTRADIOL
     Indication: AZOTAEMIA
     Dosage: 25 MCG, EVERY 3.5 DAY
     Route: 062
  2. DARBEPOETIN ALFA [Concomitant]
     Active Substance: DARBEPOETIN ALFA
  3. ACETYLSALICYLIC ACID({=100 MG) [Suspect]
     Active Substance: ASPIRIN
     Indication: CORONARY ARTERY DISEASE
     Dosage: 81 MG, UNK, RESTARTED AFTER DISCHARGE, RIGHT HEMATOMA EPISODE
  4. ACETYLSALICYLIC ACID({=100 MG) [Suspect]
     Active Substance: ASPIRIN
     Indication: CORONARY ARTERY DISEASE
     Dosage: 81 MG, UNK, DISCONTINUED AFTER RIGHT ILIACUS HEMATOMA
  5. ESTRADIOL. [Suspect]
     Active Substance: ESTRADIOL
     Indication: AZOTAEMIA
     Dosage: 50 MCG, EVERY 3.5 DAYS
     Route: 062
     Dates: start: 201009
  6. WARFARIN [Suspect]
     Active Substance: WARFARIN
     Indication: CORONARY ARTERY DISEASE

REACTIONS (7)
  - Haemorrhagic anaemia [Recovered/Resolved]
  - Labelled drug-drug interaction medication error [None]
  - Muscle haemorrhage [Recovered/Resolved]
  - Haematoma [Recovered/Resolved]
  - Incision site haemorrhage [Recovered/Resolved]
  - Product use issue [None]
  - Haemorrhagic anaemia [None]
